FAERS Safety Report 10084537 (Version 1)
Quarter: 2014Q2

REPORT INFORMATION
  Report Type: Spontaneous
  Country: US (occurrence: None)
  Receive Date: 20140404
  Receipt Date: 20140404
  Transmission Date: 20141212
  Serious: No
  Sender: FDA-Public Use
  Company Number: 1338467

PATIENT
  Sex: Female

DRUGS (4)
  1. PERJETA (PERTUZUMAB) [Suspect]
     Indication: PRODUCT USED FOR UNKNOWN INDICATION
  2. HERCEPTIN (TRASTUZUMAB) [Suspect]
     Indication: BREAST CANCER METASTATIC
  3. TAXOTERE (DOCETAXEL) [Concomitant]
  4. CIPRO (CIPROFLOXACIN) [Concomitant]

REACTIONS (2)
  - Aspartate aminotransferase increased [None]
  - Alanine aminotransferase increased [None]
